FAERS Safety Report 6993985-0 (Version None)
Quarter: 2010Q3

REPORT INFORMATION
  Report Type: 
  Country: None (occurrence: None)
  Receive Date: 20100917
  Receipt Date: 20070816
  Transmission Date: 20110219
  Serious: Yes (Hospitalization, Other)
  Sender: FDA-Public Use
  Company Number: US-ASTRAZENECA-2006UW27745

PATIENT
  Age: 6945 Day
  Sex: Male
  Weight: 101.6 kg

DRUGS (14)
  1. SEROQUEL [Suspect]
     Indication: SCHIZOPHRENIA
     Dosage: 100 MG, 600 MG
     Route: 048
     Dates: start: 20030315
  2. SEROQUEL [Suspect]
     Dosage: STRENGTH- 100 MG, 300 MG, 600 MG  DOSE- 300 MG-600 MG DAILY
     Route: 048
     Dates: start: 20040927
  3. ABILIFY [Concomitant]
     Dosage: 25 MG TO 50 MG
     Dates: start: 20030101
  4. GEODON [Concomitant]
     Dates: start: 20030101, end: 20040101
  5. GEODON [Concomitant]
     Dates: start: 20040927
  6. HALDOL [Concomitant]
     Dosage: 10 MG TO 20 MG
  7. RISPERDAL [Concomitant]
     Dosage: 50 MG TO 100 MG
     Dates: start: 20030101, end: 20050101
  8. COGENTIN [Concomitant]
     Route: 048
     Dates: start: 20040928
  9. REGLAN [Concomitant]
     Dosage: STRENGTH- 5MG/ML DOSE- 10MG  EVERY 6 HOURS
     Route: 042
     Dates: start: 20040928
  10. PERPHENAZINE [Concomitant]
     Route: 048
     Dates: start: 20040927
  11. TRAZODONE HCL [Concomitant]
     Dates: start: 20040927
  12. RESTORIL [Concomitant]
     Dates: start: 20040927
  13. FLUPHENAZINE [Concomitant]
     Dates: start: 20060309
  14. PROFENAMINE [Concomitant]
     Dates: start: 20040927

REACTIONS (4)
  - DIABETES MELLITUS [None]
  - DIABETIC COMA [None]
  - PANCREATITIS [None]
  - PANCREATITIS ACUTE [None]
